FAERS Safety Report 4940649-0 (Version None)
Quarter: 2006Q1

REPORT INFORMATION
  Report Type: 
  Country: None (occurrence: None)
  Receive Date: 20060206
  Receipt Date: 20050621
  Transmission Date: 20060701
  Serious: Yes (Hospitalization)
  Sender: FDA-Public Use
  Company Number: MEDI-0003503

PATIENT
  Age: 36 Year
  Sex: Male
  Weight: 104.3273 kg

DRUGS (6)
  1. ETHYOL [Suspect]
     Indication: CHEMOTHERAPY
     Dosage: 5 IN 1 WK, SUBCUTANEOUS
     Route: 058
     Dates: start: 20050501
  2. ETHYOL [Suspect]
     Indication: RADIOTHERAPY
     Dosage: 5 IN 1 WK, SUBCUTANEOUS
     Route: 058
     Dates: start: 20050501
  3. RADIATION THERAPY [Concomitant]
  4. CARBOPLATIN [Concomitant]
  5. TAXOL [Concomitant]
  6. DURAGESIC-100 [Concomitant]

REACTIONS (2)
  - NAUSEA [None]
  - VOMITING [None]
